FAERS Safety Report 25076218 (Version 1)
Quarter: 2025Q1

REPORT INFORMATION
  Report Type: Spontaneous
  Country: US (occurrence: None)
  Receive Date: 20250313
  Receipt Date: 20250313
  Transmission Date: 20250409
  Serious: Yes (Disabling)
  Sender: FDA-CTU
  Company Number: None

PATIENT
  Age: 55 Year
  Sex: Female
  Weight: 75.15 kg

DRUGS (11)
  1. ATORVASTATIN [Suspect]
     Active Substance: ATORVASTATIN
     Indication: Blood cholesterol increased
     Dosage: OTHER QUANTITY : 2 TABLET(S);?FREQUENCY : AT BEDTIME;?
     Route: 048
     Dates: start: 20240917, end: 20241115
  2. OZEMPIC [Suspect]
     Active Substance: SEMAGLUTIDE
  3. Accu-chek guide blood sugar meter [Concomitant]
  4. ANASTROZOLE [Concomitant]
     Active Substance: ANASTROZOLE
  5. LISINOPRIL [Concomitant]
     Active Substance: LISINOPRIL
  6. ACYCLOVIR [Concomitant]
     Active Substance: ACYCLOVIR
  7. METFORMIN [Concomitant]
     Active Substance: METFORMIN HYDROCHLORIDE
  8. ROSUVASTATIN [Concomitant]
     Active Substance: ROSUVASTATIN
  9. Multivitamin for 50+ women [Concomitant]
  10. ACETAMINOPHEN [Concomitant]
     Active Substance: ACETAMINOPHEN
  11. IBUPROFEN [Concomitant]
     Active Substance: IBUPROFEN

REACTIONS (4)
  - Blood cholesterol increased [None]
  - Glycosylated haemoglobin increased [None]
  - Synovial cyst [None]
  - Osteoarthritis [None]

NARRATIVE: CASE EVENT DATE: 20241017
